FAERS Safety Report 16917896 (Version 2)
Quarter: 2019Q4

REPORT INFORMATION
  Report Type: Spontaneous
  Country: US (occurrence: US)
  Receive Date: 20191015
  Receipt Date: 20191112
  Transmission Date: 20200122
  Serious: Yes (Other)
  Sender: FDA-Public Use
  Company Number: US-TEVA-2019-US-1122644

PATIENT
  Age: 59 Year
  Sex: Female
  Weight: 57 kg

DRUGS (1)
  1. AJOVY [Suspect]
     Active Substance: FREMANEZUMAB-VFRM
     Dosage: 1 INJECTION MONTHLY
     Dates: start: 2018

REACTIONS (8)
  - Shoulder operation [Recovered/Resolved]
  - Therapeutic response shortened [Unknown]
  - Vestibular migraine [Unknown]
  - Crohn^s disease [Unknown]
  - Therapeutic product effect delayed [Unknown]
  - Abdominal migraine [Unknown]
  - Muscle tightness [Recovered/Resolved]
  - Migraine [Unknown]

NARRATIVE: CASE EVENT DATE: 2019
